FAERS Safety Report 8831927 (Version 1)
Quarter: 2012Q4

REPORT INFORMATION
  Report Type: 
  Country: US (occurrence: US)
  Receive Date: 20121009
  Receipt Date: 20121009
  Transmission Date: 20130627
  Serious: Yes (Other)
  Sender: FDA-Public Use
  Company Number: US-009507513-1112USA02969

PATIENT
  Sex: Female

DRUGS (4)
  1. JANUVIA [Suspect]
     Route: 048
  2. GLIPIZIDE [Interacting]
  3. LANTUS [Interacting]
     Dosage: 10 IU, qd
     Route: 058
  4. LANTUS [Interacting]
     Dosage: 20 IU, qd
     Route: 058

REACTIONS (4)
  - Drug interaction [Unknown]
  - Blood glucose increased [Unknown]
  - Condition aggravated [Unknown]
  - Pain in extremity [Unknown]
